FAERS Safety Report 15312624 (Version 2)
Quarter: 2018Q3

REPORT INFORMATION
  Report Type: Spontaneous
  Country: US (occurrence: US)
  Receive Date: 20180823
  Receipt Date: 20180910
  Transmission Date: 20181010
  Serious: No
  Sender: FDA-Public Use
  Company Number: US-GLAXOSMITHKLINE-US2018GSK142467

PATIENT
  Sex: Female

DRUGS (5)
  1. SUMATRIPTAN SUCCINATE SOLUTION FOR INJECTION IN PRE?FILLED PEN [Suspect]
     Active Substance: SUMATRIPTAN SUCCINATE
     Dosage: UNK
  2. SUMATRIPTAN SUCCINATE SOLUTION FOR INJECTION IN PRE?FILLED PEN [Suspect]
     Active Substance: SUMATRIPTAN SUCCINATE
     Dosage: UNK
     Dates: start: 1998
  3. SUMATRIPTAN SUCCINATE SOLUTION FOR INJECTION IN PRE?FILLED PEN [Suspect]
     Active Substance: SUMATRIPTAN SUCCINATE
     Dosage: UNK
  4. SUMATRIPTAN SUCCINATE SOLUTION FOR INJECTION IN PRE?FILLED PEN [Suspect]
     Active Substance: SUMATRIPTAN SUCCINATE
     Dosage: UNK
  5. SUMATRIPTAN SUCCINATE SOLUTION FOR INJECTION IN PRE?FILLED PEN [Suspect]
     Active Substance: SUMATRIPTAN SUCCINATE
     Dosage: UNK

REACTIONS (3)
  - Injection site pain [Unknown]
  - Underdose [Unknown]
  - Product quality issue [Unknown]
